FAERS Safety Report 5965033-2 (Version None)
Quarter: 2008Q4

REPORT INFORMATION
  Report Type: 
  Country: None (occurrence: None)
  Receive Date: 20081125
  Receipt Date: 20081125
  Transmission Date: 20090506
  Serious: Yes (Hospitalization, Other)
  Sender: FDA-Public Use
  Company Number: US-ABBOTT-08P-163-0487173-00

PATIENT
  Sex: Female

DRUGS (17)
  1. HUMIRA [Suspect]
     Indication: CROHN'S DISEASE
     Route: 058
     Dates: start: 20080701
  2. PANTOPRAZOLE SODIUM [Concomitant]
     Indication: CROHN'S DISEASE
  3. ESCITALOPRAM OXALATE [Concomitant]
     Indication: ANXIETY
  4. ALPRAZOLAM [Concomitant]
     Indication: CROHN'S DISEASE
  5. ZOLPIDEM TARTRATE [Concomitant]
     Indication: INSOMNIA
  6. MORPHINE SULFATE [Concomitant]
     Indication: PAIN
  7. ZANAFLEX [Concomitant]
     Indication: MUSCLE RELAXANT THERAPY
  8. WARFARIN SODIUM [Concomitant]
     Indication: THROMBOSIS
  9. POTASSIUM CHLORIDE [Concomitant]
     Indication: ELECTROLYTE SUBSTITUTION THERAPY
  10. ALBUTEROL SULFATE [Concomitant]
     Indication: DYSPNOEA
  11. FLUTICASONE PROPIONATE [Concomitant]
     Indication: RESPIRATORY DISORDER
  12. IBANDRONATE SODIUM [Concomitant]
     Indication: OSTEOPOROSIS
  13. ERGOCALCIFEROL [Concomitant]
     Indication: OSTEOPOROSIS
  14. TUMS [Concomitant]
     Indication: OSTEOPOROSIS
  15. PHENERGAN HCL [Concomitant]
     Indication: NAUSEA
     Dosage: AS NEEDED
  16. PARACETAMOL [Concomitant]
     Indication: PAIN
  17. PARACETAMOL [Concomitant]
     Indication: PYREXIA

REACTIONS (14)
  - ABDOMINAL WALL ABSCESS [None]
  - ADDISON'S DISEASE [None]
  - ASTHENIA [None]
  - BLOOD PRESSURE DECREASED [None]
  - BLOOD PRESSURE FLUCTUATION [None]
  - DYSPNOEA [None]
  - ERYTHEMA [None]
  - FALL [None]
  - FEMALE GENITAL TRACT FISTULA [None]
  - HEART RATE DECREASED [None]
  - HEART RATE IRREGULAR [None]
  - MALAISE [None]
  - PALPITATIONS [None]
  - VOMITING [None]
